FAERS Safety Report 4837324-X (Version None)
Quarter: 2005Q4

REPORT INFORMATION
  Report Type: 
  Country: None (occurrence: None)
  Receive Date: 20051122
  Receipt Date: 20051115
  Transmission Date: 20060501
  Serious: Yes (Life-Threatening, Hospitalization)
  Sender: FDA-Public Use
  Company Number: J081-002-002107

PATIENT
  Age: 78 Year
  Sex: Female

DRUGS (20)
  1. ARICEPT [Suspect]
     Dosage: 5 MG, 1 IN 1 D; ORAL
     Route: 048
     Dates: end: 20050824
  2. RHEUMATREX [Suspect]
     Indication: RHEUMATOID ARTHRITIS
     Dosage: 6 MG, 1 IN 1 WK, ORAL, 1 MG, 1 IN 1 WK; ORAL, 2 MG, 1 IN 1 WK; ORA,
     Route: 048
     Dates: end: 20021216
  3. RHEUMATREX [Suspect]
     Indication: RHEUMATOID ARTHRITIS
     Dosage: 6 MG, 1 IN 1 WK, ORAL, 1 MG, 1 IN 1 WK; ORAL, 2 MG, 1 IN 1 WK; ORA,
     Route: 048
     Dates: start: 20021227, end: 20050101
  4. RHEUMATREX [Suspect]
     Indication: RHEUMATOID ARTHRITIS
     Dosage: 6 MG, 1 IN 1 WK, ORAL, 1 MG, 1 IN 1 WK; ORAL, 2 MG, 1 IN 1 WK; ORA,
     Route: 048
     Dates: start: 20050101, end: 20050824
  5. ALFACALCIDOL (ALFACALCIDOL) [Suspect]
     Dosage: 0.5 MCG, 1 IN 1 D; ORAL
     Route: 048
     Dates: end: 20050824
  6. BETAMETHASONE [Suspect]
     Dosage: ORAL
     Route: 048
     Dates: end: 20050824
  7. BLOPRESS (CANDESARTAN CILEXETIL) [Suspect]
     Dosage: 8 MG, 1 IN 1 D; ORAL
     Route: 048
     Dates: end: 20050824
  8. DEPAS (ETIZOLAM) [Suspect]
     Dosage: 0.5 MG, 1 IN 1 D; ORAL
     Route: 048
     Dates: end: 20050824
  9. DOGMATYL         (SULPIRIDE) [Suspect]
     Dosage: 50 MG, 1 IN 1 D; ORAL
     Route: 048
     Dates: end: 20050824
  10. DOMPERIDONE (DOMPERIDONE) [Suspect]
     Dosage: 30 MG, 1 IN 1 D; ORAL
     Route: 048
     Dates: end: 20050824
  11. DORNER             (BERAPROST SODIUM) [Suspect]
     Dosage: 20 MCG, 1 IN 1 D; ORAL
     Route: 048
     Dates: end: 20050824
  12. ESTRIOL (ESTRIOL) [Suspect]
     Dosage: 1 MG, 1 IN 1 D; ORAL
     Route: 048
     Dates: end: 20050824
  13. CASMOTIN (MOSAPRIDE CITRATE) [Suspect]
     Dosage: 5 MG, 1 IN 1 D; ORAL
     Route: 048
     Dates: end: 20050824
  14. LAMISIL [Suspect]
     Dosage: 125 MG, 1 IN 1 D; ORAL
     Route: 048
     Dates: end: 20050824
  15. LASIX [Suspect]
     Dosage: 20 MG, 1 IN 1 D; ORAL
     Route: 048
     Dates: end: 20050824
  16. METHYCOBAL (MECOBALAMIN) [Suspect]
     Dosage: 1.5 MG, 1 IN 1 D; ORAL
     Route: 048
     Dates: end: 20050824
  17. MOBIC [Suspect]
     Dosage: 10 MG, 1 IN 1 D; ORAL
     Route: 048
     Dates: end: 20050824
  18. OLOPATADINE HYDROCHLORIDE [Suspect]
     Dosage: 5 MG, 1 IN 1 D; ORAL
     Route: 048
     Dates: end: 20050824
  19. PRIMOBOLAN-DEPOT INJ [Suspect]
     Dosage: 5 MG, 1 IN 1 D; ORAL
     Route: 048
     Dates: end: 20050824
  20. LANSOPRAZOLE [Suspect]
     Dosage: 15 MG, 1 IN 1 D; ORAL
     Route: 048
     Dates: end: 20050824

REACTIONS (8)
  - COMA [None]
  - DEMENTIA [None]
  - GASTROINTESTINAL HAEMORRHAGE [None]
  - HEPATIC FUNCTION ABNORMAL [None]
  - HYPERAMMONAEMIA [None]
  - PANCYTOPENIA [None]
  - RENAL IMPAIRMENT [None]
  - TOXIC SKIN ERUPTION [None]
